FAERS Safety Report 5941221-6 (Version None)
Quarter: 2008Q4

REPORT INFORMATION
  Report Type: 
  Country: None (occurrence: None)
  Receive Date: 20081104
  Receipt Date: 20081023
  Transmission Date: 20090506
  Serious: Yes (Other)
  Sender: FDA-Public Use
  Company Number: CA-PFIZER INC-2008086442

PATIENT
  Sex: Female

DRUGS (6)
  1. DETROL LA [Suspect]
     Indication: HYPERTONIC BLADDER
     Route: 048
     Dates: start: 20080901
  2. PRAVASTATIN [Concomitant]
     Route: 048
     Dates: start: 19880101
  3. PANTOLOC ^BYK MADAUS^ [Concomitant]
     Route: 048
     Dates: start: 19800101
  4. HYZAAR [Concomitant]
     Route: 048
     Dates: start: 19880101
  5. ATENOLOL [Concomitant]
     Route: 048
     Dates: start: 19880101
  6. EFFEXOR [Concomitant]
     Route: 048
     Dates: start: 20040101

REACTIONS (1)
  - HYPERTENSION [None]
